FAERS Safety Report 12435220 (Version 1)
Quarter: 2016Q2

REPORT INFORMATION
  Report Type: Spontaneous
  Country: US (occurrence: US)
  Receive Date: 20160603
  Receipt Date: 20160603
  Transmission Date: 20160815
  Serious: No
  Sender: FDA-Public Use
  Company Number: US-ROCHE-1447020

PATIENT
  Sex: Female

DRUGS (3)
  1. OXYCONTIN [Concomitant]
     Active Substance: OXYCODONE HYDROCHLORIDE
     Indication: PAIN
  2. XELODA [Suspect]
     Active Substance: CAPECITABINE
     Dosage: 500 MG 4 BID
     Route: 048
     Dates: start: 20140528
  3. XELODA [Suspect]
     Active Substance: CAPECITABINE
     Indication: PRODUCT USED FOR UNKNOWN INDICATION
     Route: 048
     Dates: start: 20140528, end: 20150629

REACTIONS (6)
  - Skin discolouration [Unknown]
  - Pain [Unknown]
  - Glossodynia [Unknown]
  - Skin exfoliation [Unknown]
  - Skin fissures [Unknown]
  - Oral pain [Unknown]
